FAERS Safety Report 9780218 (Version 3)
Quarter: 2014Q2

REPORT INFORMATION
  Report Type: Spontaneous
  Country: US (occurrence: US)
  Receive Date: 20131223
  Receipt Date: 20140422
  Transmission Date: 20141212
  Serious: No
  Sender: FDA-Public Use
  Company Number: US-TEVA-448846USA

PATIENT
  Age: 30 Year
  Sex: Female
  Weight: 60.38 kg

DRUGS (1)
  1. PARAGARD 380A [Suspect]
     Indication: CONTRACEPTION
     Route: 015
     Dates: start: 20130905, end: 20131203

REACTIONS (2)
  - Rash maculo-papular [Recovering/Resolving]
  - Urticaria [Not Recovered/Not Resolved]
